FAERS Safety Report 5494425-3 (Version None)
Quarter: 2007Q4

REPORT INFORMATION
  Report Type: 
  Country: None (occurrence: None)
  Receive Date: 20071022
  Receipt Date: 20071022
  Transmission Date: 20080405
  Serious: Yes (Other)
  Sender: FDA-Public Use
  Company Number: None

PATIENT
  Sex: Female
  Weight: 0.88 kg

DRUGS (1)
  1. CHLORAPREP SINGLE SWABSTICK [Suspect]
     Indication: LOCAL ANTIBACTERIAL THERAPY
     Dates: start: 20071013, end: 20071017

REACTIONS (2)
  - CATHETER SITE ERYTHEMA [None]
  - IMPLANT SITE PUSTULES [None]
